FAERS Safety Report 21707678 (Version 2)
Quarter: 2023Q1

REPORT INFORMATION
  Report Type: Spontaneous
  Country: US (occurrence: US)
  Receive Date: 20221209
  Receipt Date: 20230309
  Transmission Date: 20230418
  Serious: No
  Sender: FDA-Public Use
  Company Number: US-KARYOPHARM-2022KPT001523

PATIENT

DRUGS (16)
  1. XPOVIO [Suspect]
     Active Substance: SELINEXOR
     Indication: Plasma cell myeloma
     Dosage: 40 MG, WEEKLY
     Route: 048
     Dates: start: 20221117, end: 202212
  2. XPOVIO [Suspect]
     Active Substance: SELINEXOR
     Dosage: 20 MG, WEEKLY
     Route: 048
     Dates: start: 202212
  3. APREPITANT [Concomitant]
     Active Substance: APREPITANT
     Dosage: 125MG 1 HOUR PRIOR TO TAKING SELINEXOR, THEN 80MG DAILY ON DAYS 2 AND 3
  4. APREPITANT [Concomitant]
     Active Substance: APREPITANT
     Dosage: 125MG 1 HOUR PRIOR TO TAKING SELINEXOR, THEN 80MG DAILY ON DAYS 2 AND 3
  5. CARBIDOPA AND LEVODOPA [Concomitant]
     Active Substance: CARBIDOPA\LEVODOPA
     Indication: Parkinson^s disease
     Dosage: 2 TABLETS, TID
     Route: 048
  6. COREG [Concomitant]
     Active Substance: CARVEDILOL
     Dosage: 3.125 MG, BID
     Route: 048
  7. DEXAMETHASONE [Concomitant]
     Active Substance: DEXAMETHASONE
     Dosage: 20 MG, ONCE A WEEK WITH NINLARO (IXAZOMIB) FOR THREE WEEKS AND ONE WEEK OFF
     Route: 048
  8. NINLARO [Concomitant]
     Active Substance: IXAZOMIB CITRATE
     Dosage: 3 MG, WEEKLY FOR 3 WEEKS ON THEN 1 WEEK OFF, ON A 4 WEEK INTERVAL
     Route: 048
  9. KLOR-CON M20 [Concomitant]
     Active Substance: POTASSIUM CHLORIDE
     Dosage: 20 MEQ, BID
     Route: 048
  10. OLANZAPINE [Concomitant]
     Active Substance: OLANZAPINE
     Indication: Prophylaxis of nausea and vomiting
     Dosage: 2.5 MG, QD
     Route: 048
  11. ONDANSETRON [Concomitant]
     Active Substance: ONDANSETRON
     Dosage: 8 MG, ONCE DAILY AND DURING THE DAY AS NEEDED
     Route: 048
  12. ROPINIROLE [Concomitant]
     Active Substance: ROPINIROLE
     Dosage: 4 MG, QD IN THE MORNING
     Route: 048
  13. SERTRALINE [Concomitant]
     Active Substance: SERTRALINE HYDROCHLORIDE
     Dosage: 50 MG, QD
     Route: 048
  14. VALACYCLOVIR HYDROCHLORIDE [Concomitant]
     Active Substance: VALACYCLOVIR HYDROCHLORIDE
     Dosage: 500 MG, BID
     Route: 048
  15. MUPIROCIN [Concomitant]
     Active Substance: MUPIROCIN
     Dosage: 0.02 MG/MG, APPLY TO ABRASIONS, TWICE DAILT FOR 7 DAYS
     Route: 061
  16. DARZALEX [Concomitant]
     Active Substance: DARATUMUMAB

REACTIONS (6)
  - Feeling abnormal [Recovering/Resolving]
  - Memory impairment [Recovered/Resolved]
  - Blood urea increased [Recovered/Resolved]
  - Confusional state [Not Recovered/Not Resolved]
  - Dehydration [Unknown]
  - Product dose omission issue [Unknown]

NARRATIVE: CASE EVENT DATE: 20220101
